FAERS Safety Report 21967996 (Version 1)
Quarter: 2023Q1

REPORT INFORMATION
  Report Type: Other
  Country: US (occurrence: US)
  Receive Date: 20230208
  Receipt Date: 20230208
  Transmission Date: 20230417
  Serious: No
  Sender: FDA-Public Use
  Company Number: US-TRAVERE-2022TVT00489

PATIENT
  Age: 2 Year
  Sex: Male

DRUGS (1)
  1. CHOLBAM [Suspect]
     Active Substance: CHOLIC ACID
     Indication: Cerebrohepatorenal syndrome
     Dosage: CHOLBAM 50MG: 2 CAPS IN MORNING AND 1 CAP IN EVENING
     Route: 048
     Dates: start: 20220426

REACTIONS (1)
  - Hepatic enzyme increased [Unknown]
